FAERS Safety Report 6331233-5 (Version None)
Quarter: 2009Q3

REPORT INFORMATION
  Report Type: 
  Country: None (occurrence: None)
  Receive Date: 20090827
  Receipt Date: 20090821
  Transmission Date: 20100115
  Serious: Yes (Other)
  Sender: FDA-Public Use
  Company Number: US-MERCK-0908USA02628

PATIENT
  Age: 46 Year
  Sex: Male

DRUGS (3)
  1. SINGULAIR [Suspect]
     Indication: VOCAL CORD DISORDER
     Route: 048
  2. SINGULAIR [Suspect]
     Indication: HYPERSENSITIVITY
     Route: 048
  3. LORATADINE [Concomitant]
     Indication: RHINITIS ALLERGIC
     Route: 048

REACTIONS (3)
  - DEPRESSION [None]
  - PRURITUS [None]
  - SUICIDAL IDEATION [None]
